FAERS Safety Report 23793467 (Version 1)
Quarter: 2024Q2

REPORT INFORMATION
  Report Type: Spontaneous
  Country: GB (occurrence: GB)
  Receive Date: 20240429
  Receipt Date: 20240429
  Transmission Date: 20240716
  Serious: Yes (Life-Threatening)
  Sender: FDA-Public Use
  Company Number: None

PATIENT
  Age: 4 Year
  Sex: Female
  Weight: 14 kg

DRUGS (12)
  1. CIPROFLOXACIN [Suspect]
     Active Substance: CIPROFLOXACIN
     Dosage: 250 MG
     Route: 048
     Dates: start: 20240403, end: 20240403
  2. BACLOFEN [Concomitant]
     Active Substance: BACLOFEN
     Dosage: 9 ML, TID
     Dates: start: 20231120
  3. CAROB [Concomitant]
     Active Substance: CAROB
     Dosage: 1 SCOOP PER 100ML OF FEED
     Route: 048
     Dates: start: 20231120
  4. BECLOMETHASONE DIPROPIONATE [Concomitant]
     Active Substance: BECLOMETHASONE DIPROPIONATE
     Route: 055
     Dates: start: 20231120
  5. COTRIMOXAZOLE [Concomitant]
     Active Substance: SULFAMETHOXAZOLE\TRIMETHOPRIM
     Dates: start: 20231120
  6. DIAZEPAM [Concomitant]
     Active Substance: DIAZEPAM
     Dosage: 0.5 MG
     Route: 048
     Dates: start: 20231220
  7. SCOPOLAMINE HYDROBROMIDE [Concomitant]
     Active Substance: SCOPOLAMINE HYDROBROMIDE
     Dosage: 0.75 DF, Q72HR
     Route: 062
     Dates: start: 20231120
  8. LEVETIRACETAM [Concomitant]
     Active Substance: LEVETIRACETAM
     Dates: start: 20240327
  9. MELATONIN [Concomitant]
     Active Substance: MELATONIN
     Dosage: 1.5 ML, QD
     Dates: start: 20231120
  10. POLYETHYLENE GLYCOL\POTASSIUM CHLORIDE\SODIUM BICARBONATE\SODIUM CHLOR [Concomitant]
     Active Substance: POLYETHYLENE GLYCOL\POTASSIUM CHLORIDE\SODIUM BICARBONATE\SODIUM CHLORIDE
     Dosage: .5 DF, QD
     Dates: start: 20231120
  11. TRIHEXYPHENIDYL HYDROCHLORIDE [Concomitant]
     Active Substance: TRIHEXYPHENIDYL HYDROCHLORIDE
     Dosage: 4 MG, TID
     Route: 048
     Dates: start: 20240103
  12. ALBUTEROL SULFATE [Concomitant]
     Active Substance: ALBUTEROL SULFATE
     Dosage: 10 DF, UNK
     Route: 055
     Dates: start: 20231228

REACTIONS (3)
  - Urticaria [Recovering/Resolving]
  - Respiratory arrest [Recovered/Resolved]
  - Anaphylactic reaction [Unknown]

NARRATIVE: CASE EVENT DATE: 20240403
